FAERS Safety Report 6131464-3 (Version None)
Quarter: 2009Q1

REPORT INFORMATION
  Report Type: 
  Country: None (occurrence: None)
  Receive Date: 20090325
  Receipt Date: 20081212
  Transmission Date: 20090719
  Serious: Yes (Life-Threatening)
  Sender: FDA-Public Use
  Company Number: US-BRISTOL-MYERS SQUIBB COMPANY-14280770

PATIENT
  Age: 66 Year
  Sex: Female

DRUGS (5)
  1. ERBITUX [Suspect]
     Route: 042
     Dates: start: 20060125, end: 20060125
  2. BENADRYL [Concomitant]
     Route: 042
  3. DECADRON [Concomitant]
     Dosage: 1 DF=20(UNITS NOT MENTIONED).
  4. ATROPINE [Concomitant]
     Route: 042
  5. ALOXI [Concomitant]
     Dosage: 1 DF=.25(UNITS NOT MENTIONED).

REACTIONS (1)
  - ANAPHYLACTIC REACTION [None]
